FAERS Safety Report 8347711-3 (Version None)
Quarter: 2012Q2

REPORT INFORMATION
  Report Type: 
  Country: None (occurrence: None)
  Receive Date: 20120509
  Receipt Date: 20120502
  Transmission Date: 20120825
  Serious: Yes (Other)
  Sender: FDA-Public Use
  Company Number: US-ABBOTT-12P-163-0932083-00

PATIENT
  Sex: Male
  Weight: 122.58 kg

DRUGS (16)
  1. FUROSEMIDE [Concomitant]
     Indication: HYPERTENSION
  2. OLUX E [Concomitant]
     Indication: PSORIASIS
     Dosage: FOAM
  3. FISH OIL [Concomitant]
     Indication: SUPPLEMENTATION THERAPY
  4. HUMIRA [Suspect]
     Indication: PSORIATIC ARTHROPATHY
     Dates: start: 20110101
  5. POTASSIUM CHLORIDE [Concomitant]
     Indication: MINERAL SUPPLEMENTATION
  6. METHOTREXATE [Concomitant]
     Indication: PSORIATIC ARTHROPATHY
  7. LISINOPRIL [Concomitant]
     Indication: HYPERTENSION
  8. KLONOPIN [Concomitant]
     Indication: BIPOLAR DISORDER
  9. FOLIC ACID [Concomitant]
     Indication: VITAMIN SUPPLEMENTATION
  10. METFORMIN HCL [Concomitant]
     Indication: DIABETES MELLITUS
  11. SEROQUEL [Concomitant]
     Indication: BIPOLAR DISORDER
  12. DIVALPROEX SODIUM [Concomitant]
     Indication: PRODUCT USED FOR UNKNOWN INDICATION
  13. LAMOTRIGINE [Concomitant]
     Indication: BIPOLAR DISORDER
  14. LEVOTHYROXINE SODIUM [Concomitant]
     Indication: HYPOTHYROIDISM
  15. DILTIAZEM [Concomitant]
     Indication: ATRIAL FIBRILLATION
  16. WARFARIN SODIUM [Concomitant]
     Indication: ATRIAL FIBRILLATION

REACTIONS (3)
  - CARTILAGE INJURY [None]
  - ARTHRALGIA [None]
  - ARTHROPATHY [None]
